FAERS Safety Report 4519181-4 (Version None)
Quarter: 2004Q4

REPORT INFORMATION
  Report Type: 
  Country: None (occurrence: None)
  Receive Date: 20041206
  Receipt Date: 20041130
  Transmission Date: 20050328
  Serious: Yes (Other)
  Sender: FDA-Public Use
  Company Number: AU-ROCHE-387798

PATIENT
  Age: 55 Year
  Sex: Female

DRUGS (13)
  1. GANCICLOVIR SODIUM [Suspect]
     Indication: DRUG USE FOR UNKNOWN INDICATION
     Route: 042
     Dates: start: 20040303, end: 20040317
  2. GANCICLOVIR [Suspect]
     Indication: DRUG USE FOR UNKNOWN INDICATION
     Route: 048
     Dates: start: 20040318, end: 20040320
  3. CYCLOSPORIN [Concomitant]
  4. PREDNISOLONE [Concomitant]
  5. OMEPRAZOLE [Concomitant]
  6. VALTREX [Concomitant]
  7. AVAPRO [Concomitant]
  8. ATENOLOL [Concomitant]
  9. MINIPRESS [Concomitant]
  10. LIPITOR [Concomitant]
  11. PARACETAMOL [Concomitant]
  12. MAXOLON [Concomitant]
  13. TRAMADOL [Concomitant]

REACTIONS (1)
  - HYPOGLYCAEMIA [None]
